FAERS Safety Report 17604651 (Version 1)
Quarter: 2020Q1

REPORT INFORMATION
  Report Type: Spontaneous
  Country: US (occurrence: US)
  Receive Date: 20200331
  Receipt Date: 20200331
  Transmission Date: 20200409
  Serious: No
  Sender: FDA-Public Use
  Company Number: US-PFIZER INC-2020128190

PATIENT
  Age: 83 Year
  Sex: Female
  Weight: 81.65 kg

DRUGS (1)
  1. ADVIL LIQUI-GELS [Suspect]
     Active Substance: IBUPROFEN
     Indication: PAIN
     Dosage: 400 MG, AS NEEDED, (200MG, 2 BY MOUTH DAILY AS NEEDED)
     Route: 048

REACTIONS (2)
  - Product shape issue [Not Recovered/Not Resolved]
  - Foreign body in respiratory tract [Not Recovered/Not Resolved]

NARRATIVE: CASE EVENT DATE: 20200325
